FAERS Safety Report 10109921 (Version 2)
Quarter: 2014Q2

REPORT INFORMATION
  Report Type: Spontaneous
  Country: US (occurrence: None)
  Receive Date: 20140423
  Receipt Date: 20140529
  Transmission Date: 20141212
  Serious: Yes (Other)
  Sender: FDA-Public Use
  Company Number: 2014AP002589

PATIENT
  Age: 52 Year
  Sex: Female

DRUGS (1)
  1. FENTANYL TRANSDERMAL PATCH [Suspect]
     Indication: PRODUCT USED FOR UNKNOWN INDICATION
     Route: 062

REACTIONS (6)
  - Convulsion [None]
  - Diarrhoea [None]
  - Headache [None]
  - Drug withdrawal syndrome [None]
  - Pain [None]
  - Product adhesion issue [None]
